FAERS Safety Report 9209145 (Version 1)
Quarter: 2013Q2

REPORT INFORMATION
  Report Type: Spontaneous
  Country: US (occurrence: None)
  Receive Date: 20130403
  Receipt Date: 20130403
  Transmission Date: 20140414
  Serious: Yes (Hospitalization)
  Sender: FDA-Public Use
  Company Number: None

PATIENT
  Age: 82 Year
  Sex: Female
  Weight: 42.3 kg

DRUGS (1)
  1. OXYFAST [Suspect]
     Indication: PAIN
     Route: 048
     Dates: start: 20130329, end: 20130330

REACTIONS (5)
  - Respiratory rate decreased [None]
  - Depressed level of consciousness [None]
  - Incorrect dose administered [None]
  - Drug prescribing error [None]
  - Drug dispensing error [None]
